FAERS Safety Report 9444524 (Version 1)
Quarter: 2013Q3

REPORT INFORMATION
  Report Type: Spontaneous
  Country: US (occurrence: None)
  Receive Date: 20130806
  Receipt Date: 20130806
  Transmission Date: 20140515
  Serious: Yes (Other)
  Sender: FDA-Public Use
  Company Number: None

PATIENT
  Sex: 0

DRUGS (1)
  1. BUPIVACAINE [Suspect]
     Dosage: ONCE  INTRATHECAL
     Route: 037

REACTIONS (1)
  - Drug ineffective [None]
